FAERS Safety Report 20910195 (Version 1)
Quarter: 2022Q2

REPORT INFORMATION
  Report Type: Spontaneous
  Country: US (occurrence: None)
  Receive Date: 20220602
  Receipt Date: 20220602
  Transmission Date: 20220720
  Serious: Yes (Other)
  Sender: FDA-Public Use
  Company Number: None

PATIENT
  Sex: Female

DRUGS (12)
  1. HUMIRA [Suspect]
     Active Substance: ADALIMUMAB
     Indication: Product used for unknown indication
     Dosage: OTHER QUANTITY : 40 MG/0.4ML;?FREQUENCY : EVERY OTHER WEEK;?
     Route: 058
     Dates: start: 20211124
  2. ALBUTEROL [Concomitant]
  3. ATROPINE SUL SOL [Concomitant]
  4. ATROPINE SUL SOL [Concomitant]
  5. BUSPIRONE TAB [Concomitant]
  6. CELEBREX [Concomitant]
  7. CYCLOBENZAPR [Concomitant]
  8. DUREZOL EMU [Concomitant]
  9. HUMIRA PEN KIT CD/UC/HS [Concomitant]
  10. PREDNISONE [Concomitant]
  11. SULFASALAZIN [Concomitant]
  12. XULANE [Concomitant]

REACTIONS (3)
  - Depression [None]
  - Back pain [None]
  - Road traffic accident [None]
